FAERS Safety Report 21511548 (Version 3)
Quarter: 2023Q1

REPORT INFORMATION
  Report Type: Other
  Country: CN (occurrence: None)
  Receive Date: 20221027
  Receipt Date: 20230206
  Transmission Date: 20230417
  Serious: Yes (Other)
  Sender: FDA-Public Use
  Company Number: CN-ROCHE-1631135

PATIENT
  Age: 70 Year
  Sex: Male
  Weight: 69 kg

DRUGS (5)
  1. AVASTIN [Suspect]
     Active Substance: BEVACIZUMAB
     Indication: Colon cancer
     Dosage: FORM OF ADMIN: 100 MG
     Route: 041
     Dates: start: 20150407, end: 20151012
  2. AVASTIN [Suspect]
     Active Substance: BEVACIZUMAB
     Dosage: FORM OF ADMIN: 100 MG
     Route: 041
     Dates: start: 20151223, end: 20160411
  3. AVASTIN [Suspect]
     Active Substance: BEVACIZUMAB
     Dosage: FORM OF ADMIN: 100 MG
     Route: 041
     Dates: end: 20161222
  4. AVASTIN [Suspect]
     Active Substance: BEVACIZUMAB
     Dosage: FORM OF ADMIN: 100 MG
     Route: 041
     Dates: start: 20180411, end: 20221123
  5. AVASTIN [Suspect]
     Active Substance: BEVACIZUMAB
     Dosage: FORM OF ADMIN: 100 MG
     Route: 041

REACTIONS (15)
  - Constipation [Recovered/Resolved]
  - Large intestinal obstruction [Recovered/Resolved]
  - Protein urine present [Recovering/Resolving]
  - Depressed mood [Unknown]
  - Nasopharyngitis [Unknown]
  - Protein urine present [Unknown]
  - Metastases to liver [Not Recovered/Not Resolved]
  - Metastases to lung [Not Recovered/Not Resolved]
  - Metastasis [Not Recovered/Not Resolved]
  - Pulmonary mass [Not Recovered/Not Resolved]
  - COVID-19 [Recovering/Resolving]
  - Pyrexia [Unknown]
  - Metastases to liver [Not Recovered/Not Resolved]
  - Soft tissue disorder [Not Recovered/Not Resolved]
  - Pulmonary mass [Not Recovered/Not Resolved]

NARRATIVE: CASE EVENT DATE: 20160411
